FAERS Safety Report 9948820 (Version 2)
Quarter: 2014Q1

REPORT INFORMATION
  Report Type: Spontaneous
  Country: JP (occurrence: JP)
  Receive Date: 20140304
  Receipt Date: 20140304
  Transmission Date: 20141002
  Serious: Yes (Other)
  Sender: FDA-Public Use
  Company Number: JP-ROCHE-1344113

PATIENT
  Age: 71 Year
  Sex: Female

DRUGS (2)
  1. BONVIVA [Suspect]
     Indication: OSTEOPOROSIS
     Route: 042
     Dates: start: 20140109
  2. GASTER (JAPAN) [Concomitant]
     Dosage: DOSAGE IS UNCERTAIN.
     Route: 065
     Dates: start: 2010

REACTIONS (3)
  - Feeling abnormal [Unknown]
  - Myalgia [Recovered/Resolved]
  - Feeling abnormal [Unknown]
